FAERS Safety Report 5979458-2 (Version None)
Quarter: 2008Q4

REPORT INFORMATION
  Report Type: 
  Country: None (occurrence: None)
  Receive Date: 20081204
  Receipt Date: 20081126
  Transmission Date: 20090506
  Serious: Yes (Other)
  Sender: FDA-Public Use
  Company Number: US-ELI_LILLY_AND_COMPANY-US200811006075

PATIENT
  Sex: Male
  Weight: 181.41 kg

DRUGS (1)
  1. BYETTA [Suspect]
     Dosage: 5 UG, UNKNOWN
     Dates: start: 20060501

REACTIONS (1)
  - PANCREATIC CARCINOMA [None]
